FAERS Safety Report 14444553 (Version 2)
Quarter: 2018Q1

REPORT INFORMATION
  Report Type: Spontaneous
  Country: DE (occurrence: DE)
  Receive Date: 20180126
  Receipt Date: 20180206
  Transmission Date: 20180509
  Serious: Yes (Other)
  Sender: FDA-Public Use
  Company Number: DE-BRISTOL-MYERS SQUIBB COMPANY-BMS-2018-005457

PATIENT
  Age: 61 Year
  Sex: Male

DRUGS (1)
  1. OPDIVO [Suspect]
     Active Substance: NIVOLUMAB
     Indication: METASTATIC RENAL CELL CARCINOMA
     Dosage: 3 CYCLES
     Route: 065
     Dates: start: 201604, end: 201606

REACTIONS (4)
  - Hyponatraemia [Unknown]
  - Diverticulitis [Unknown]
  - General physical health deterioration [Unknown]
  - Confusional state [Unknown]

NARRATIVE: CASE EVENT DATE: 201606
